FAERS Safety Report 7490389-1 (Version None)
Quarter: 2011Q2

REPORT INFORMATION
  Report Type: 
  Country: None (occurrence: None)
  Receive Date: 20110519
  Receipt Date: 20110420
  Transmission Date: 20111010
  Serious: Yes (Hospitalization, Other)
  Sender: FDA-Public Use
  Company Number: US-BAYER-201029363NA

PATIENT
  Age: 40 Year
  Sex: Female
  Weight: 77.551 kg

DRUGS (9)
  1. VALTREX [Concomitant]
  2. DARVOCET [Concomitant]
  3. ATIVAN [Concomitant]
  4. XANAX [Concomitant]
  5. ZANTAC [Concomitant]
  6. YAZ [Suspect]
     Indication: ORAL CONTRACEPTION
     Dosage: UNK UNK, UNK
     Route: 048
     Dates: start: 20060101, end: 20080101
  7. NSAID'S [Concomitant]
  8. YASMIN [Suspect]
     Indication: ORAL CONTRACEPTION
     Dosage: UNK UNK, UNK
     Route: 048
     Dates: start: 20050101, end: 20070101
  9. SOMA [Concomitant]

REACTIONS (3)
  - CHOLECYSTITIS CHRONIC [None]
  - GASTROINTESTINAL DISORDER [None]
  - CHOLELITHIASIS [None]
